FAERS Safety Report 25181030 (Version 1)
Quarter: 2025Q2

REPORT INFORMATION
  Report Type: Spontaneous
  Country: CN (occurrence: CN)
  Receive Date: 20250410
  Receipt Date: 20250410
  Transmission Date: 20250716
  Serious: Yes (Hospitalization, Other)
  Sender: Haleon PLC
  Company Number: CN-HALEON-2236891

PATIENT
  Age: 80 Year
  Sex: Male
  Weight: 63 kg

DRUGS (2)
  1. DICLOFENAC SODIUM [Suspect]
     Active Substance: DICLOFENAC SODIUM
     Indication: Analgesic therapy
     Dosage: SUSTAINED RELEASE TABLETS
     Route: 048
     Dates: start: 20250326, end: 20250405
  2. ASPIRIN [Suspect]
     Active Substance: ASPIRIN
     Indication: Platelet aggregation inhibition
     Dosage: ENTERIC-COATED TABLETS
     Route: 048
     Dates: start: 20250326, end: 20250405

REACTIONS (5)
  - Upper gastrointestinal haemorrhage [Recovering/Resolving]
  - Melaena [Recovering/Resolving]
  - Asthenia [Recovering/Resolving]
  - Dizziness [Recovering/Resolving]
  - Defaecation disorder [Not Recovered/Not Resolved]

NARRATIVE: CASE EVENT DATE: 20250402
